FAERS Safety Report 22043146 (Version 2)
Quarter: 2023Q2

REPORT INFORMATION
  Report Type: Spontaneous
  Country: IT (occurrence: IT)
  Receive Date: 20230228
  Receipt Date: 20230413
  Transmission Date: 20230722
  Serious: Yes (Life-Threatening, Hospitalization, Other)
  Sender: FDA-Public Use
  Company Number: IT-ELI_LILLY_AND_COMPANY-IT202301008252

PATIENT
  Age: 65 Year
  Sex: Female

DRUGS (4)
  1. LETROZOLE [Interacting]
     Active Substance: LETROZOLE
     Indication: Breast cancer metastatic
     Dosage: UNK UNK, CYCLICAL
     Route: 065
  2. LETROZOLE [Interacting]
     Active Substance: LETROZOLE
     Dosage: 2.5 MILLIGRAM, ONCE A DAY (2.5 MG, DAILY)
     Route: 065
  3. ABEMACICLIB [Interacting]
     Active Substance: ABEMACICLIB
     Indication: Breast cancer metastatic
     Dosage: UNK UNK, CYCLICAL
     Route: 065
  4. ABEMACICLIB [Interacting]
     Active Substance: ABEMACICLIB
     Dosage: 300 MILLIGRAM, ONCE A DAY (150 MG, BID)
     Route: 065
     Dates: start: 20221103

REACTIONS (8)
  - Hepatitis [Recovered/Resolved]
  - Drug interaction [Recovered/Resolved]
  - Pancreatic cystadenoma [Unknown]
  - Hepatic necrosis [Unknown]
  - Renal cyst [Unknown]
  - Antinuclear antibody increased [Unknown]
  - Adrenal adenoma [Unknown]
  - Adrenal mass [Unknown]

NARRATIVE: CASE EVENT DATE: 20221215
